FAERS Safety Report 9527673 (Version 1)
Quarter: 2013Q1

REPORT INFORMATION
  Report Type: Spontaneous
  Country: US (occurrence: None)
  Receive Date: 20130314
  Receipt Date: 20130314
  Transmission Date: 20140127
  Serious: No
  Sender: FDA-Public Use
  Company Number: 1212USA002946

PATIENT
  Age: 53 Year
  Sex: Male

DRUGS (3)
  1. VICTRELIS [Suspect]
     Dosage: UNK
     Dates: start: 20121029
  2. PEGINTRON [Suspect]
     Dosage: 150 MICROGRAM, UNK
     Dates: start: 20121001
  3. RIBAVIRIN [Suspect]

REACTIONS (3)
  - Asthenia [None]
  - Tremor [None]
  - Dizziness [None]
